FAERS Safety Report 7179548-5 (Version None)
Quarter: 2010Q4

REPORT INFORMATION
  Report Type: 
  Country: None (occurrence: None)
  Receive Date: 20101209
  Receipt Date: 20101126
  Transmission Date: 20110411
  Serious: Yes (Hospitalization)
  Sender: FDA-Public Use
  Company Number: 022048

PATIENT
  Sex: Male
  Weight: 73 kg

DRUGS (3)
  1. CIMZIA [Suspect]
     Indication: RHEUMATOID ARTHRITIS
     Dosage: (400 MG 1X/2 WEEKS SUBCUTANEOUS)
     Route: 058
     Dates: start: 20101104
  2. MTX /00113801/ [Concomitant]
  3. PLAQUENIL [Concomitant]

REACTIONS (6)
  - ASTHENIA [None]
  - DECREASED APPETITE [None]
  - HYPERTENSION [None]
  - NAUSEA [None]
  - PULMONARY EMBOLISM [None]
  - TACHYCARDIA [None]
